FAERS Safety Report 6704739-4 (Version None)
Quarter: 2010Q2

REPORT INFORMATION
  Report Type: 
  Country: None (occurrence: None)
  Receive Date: 20100430
  Receipt Date: 20100421
  Transmission Date: 20101027
  Serious: Yes (Life-Threatening, Other)
  Sender: FDA-Public Use
  Company Number: JP-ABBOTT-10P-087-0633153-00

PATIENT
  Sex: Female
  Weight: 43 kg

DRUGS (10)
  1. SEVOFLURANE [Suspect]
     Indication: GENERAL ANAESTHESIA
     Dosage: 1%X14HRSX6L/MIN
     Route: 055
     Dates: start: 20081111, end: 20081111
  2. ROCURONIUM BROMIDE [Concomitant]
     Indication: ENDOTRACHEAL INTUBATION
     Route: 042
     Dates: start: 20081111, end: 20081111
  3. REMIFENTANIL HYDROCHLORIDE [Concomitant]
     Indication: ANAESTHESIA
     Route: 042
     Dates: start: 20081111, end: 20081111
  4. DOPAMINE HYDROCHLORIDE [Concomitant]
     Indication: LABILE HYPERTENSION
     Dosage: 12 MICROLITER/HR
     Route: 042
     Dates: start: 20081111, end: 20081111
  5. DOPAMINE HYDROCHLORIDE [Concomitant]
     Dosage: 10 MICROLITER/HR
     Route: 042
     Dates: start: 20081111, end: 20081111
  6. DOPAMINE HYDROCHLORIDE [Concomitant]
     Dosage: 15 MICROLITER/HR
     Route: 042
     Dates: start: 20081111, end: 20081111
  7. DOPAMINE HYDROCHLORIDE [Concomitant]
     Dosage: 12 MICROLITER/HR
     Route: 042
     Dates: start: 20081111, end: 20081111
  8. DOPAMINE HYDROCHLORIDE [Concomitant]
     Dosage: 18 MICROLITER/HR
     Route: 042
     Dates: start: 20081111, end: 20081111
  9. DOPAMINE HYDROCHLORIDE [Concomitant]
     Dosage: 20 MICROLITER/HR
     Route: 042
     Dates: start: 20081111, end: 20081111
  10. PROPOFOL [Concomitant]
     Indication: ANAESTHESIA
     Dates: start: 20081111, end: 20081111

REACTIONS (3)
  - ELECTROCARDIOGRAM QT PROLONGED [None]
  - VENTRICULAR EXTRASYSTOLES [None]
  - VENTRICULAR TACHYCARDIA [None]
